FAERS Safety Report 23999114 (Version 1)
Quarter: 2024Q2

REPORT INFORMATION
  Report Type: Spontaneous
  Country: US (occurrence: US)
  Receive Date: 20240621
  Receipt Date: 20240621
  Transmission Date: 20240715
  Serious: Yes (Other)
  Sender: FDA-Public Use
  Company Number: US-AMGEN-USASP2024118965

PATIENT
  Sex: Female

DRUGS (2)
  1. REPATHA [Suspect]
     Active Substance: EVOLOCUMAB
     Indication: Blood cholesterol abnormal
     Dosage: 140 MILLIGRAM, Q2WK
     Route: 058
     Dates: end: 2023
  2. REPATHA [Suspect]
     Active Substance: EVOLOCUMAB
     Dosage: 140 MILLIGRAM, Q2WK
     Route: 058
     Dates: start: 2024

REACTIONS (10)
  - Gallbladder operation [Unknown]
  - Intentional product misuse [Unknown]
  - Lack of injection site rotation [Unknown]
  - Product administration error [Unknown]
  - Cardiovascular disorder [Unknown]
  - Pain [Unknown]
  - Blood cholesterol increased [Unknown]
  - Gastrointestinal disorder [Unknown]
  - Rhinorrhoea [Unknown]
  - Urticaria [Unknown]
